FAERS Safety Report 5390059-X (Version None)
Quarter: 2007Q3

REPORT INFORMATION
  Report Type: 
  Country: None (occurrence: None)
  Receive Date: 20070718
  Receipt Date: 20070716
  Transmission Date: 20080115
  Serious: Yes (Hospitalization)
  Sender: FDA-Public Use
  Company Number: HQWYE047516JUL07

PATIENT
  Age: 75 Year
  Sex: Male

DRUGS (11)
  1. AMIODARONE HCL [Suspect]
     Indication: ATRIAL FIBRILLATION
     Route: 048
  2. AMIODARONE HCL [Interacting]
     Indication: ATRIAL FLUTTER
  3. DIAMICRON [Concomitant]
     Indication: TYPE 2 DIABETES MELLITUS
     Route: 048
  4. OMEPRAZOLE [Concomitant]
     Route: 048
  5. METFORMIN HYDROCHLORIDE [Concomitant]
     Route: 048
  6. TORSEMIDE [Concomitant]
     Indication: ESSENTIAL HYPERTENSION
     Route: 048
  7. SIMVASTATIN [Concomitant]
     Indication: HYPERCHOLESTEROLAEMIA
     Route: 048
  8. ENALAPRIL MALEATE [Concomitant]
     Route: 065
  9. NEBILET [Interacting]
     Indication: ATRIAL FIBRILLATION
     Route: 048
     Dates: start: 20070508, end: 20070508
  10. NEBILET [Interacting]
     Indication: ATRIAL FLUTTER
  11. PLAVIX [Concomitant]
     Indication: ANGINA PECTORIS
     Route: 048

REACTIONS (6)
  - BRADYCARDIA [None]
  - CONDITION AGGRAVATED [None]
  - DRUG INEFFECTIVE [None]
  - DRUG INTERACTION [None]
  - DYSPNOEA [None]
  - HYPOTENSION [None]
